FAERS Safety Report 13403240 (Version 1)
Quarter: 2017Q2

REPORT INFORMATION
  Report Type: Spontaneous
  Country: US (occurrence: US)
  Receive Date: 20170404
  Receipt Date: 20170404
  Transmission Date: 20170830
  Serious: No
  Sender: FDA-Public Use
  Company Number: None

PATIENT
  Age: 30 Year
  Sex: Female
  Weight: 148.5 kg

DRUGS (1)
  1. KETOCANOZALE 2% CREAM [Suspect]
     Active Substance: KETOCONAZOLE
     Indication: TINEA VERSICOLOUR
     Dosage: ?          QUANTITY:1 PUFF(S);?
     Route: 061
     Dates: start: 20170324, end: 20170326

REACTIONS (5)
  - Rash [None]
  - Dry skin [None]
  - Skin irritation [None]
  - Rash erythematous [None]
  - Inflammation [None]

NARRATIVE: CASE EVENT DATE: 20170327
